FAERS Safety Report 22395084 (Version 2)
Quarter: 2024Q1

REPORT INFORMATION
  Report Type: Spontaneous
  Country: GR (occurrence: GR)
  Receive Date: 20230601
  Receipt Date: 20240209
  Transmission Date: 20240410
  Serious: Yes (Death, Other)
  Sender: FDA-Public Use
  Company Number: None

PATIENT
  Age: 43 Year
  Sex: Male
  Weight: 80 kg

DRUGS (4)
  1. MIRTAZAPINE [Suspect]
     Active Substance: MIRTAZAPINE
     Indication: Product used for unknown indication
     Dosage: UNK
     Route: 065
  2. ETORICOXIB [Suspect]
     Active Substance: ETORICOXIB
     Indication: Pain in extremity
     Dosage: UNK
     Route: 065
  3. SPIKEVAX (ELASOMERAN) [Suspect]
     Active Substance: ELASOMERAN
     Indication: Product used for unknown indication
     Dosage: FIRST DOSE
     Route: 065
     Dates: start: 20211217, end: 20211217
  4. SPIKEVAX (ELASOMERAN) [Suspect]
     Active Substance: ELASOMERAN
     Dosage: SECOND DOSE
     Route: 065
     Dates: start: 20220114, end: 20220114

REACTIONS (3)
  - Ischaemia [Fatal]
  - Pulmonary oedema [Fatal]
  - Death [Fatal]

NARRATIVE: CASE EVENT DATE: 20220322
